FAERS Safety Report 19868469 (Version 2)
Quarter: 2021Q4

REPORT INFORMATION
  Report Type: Spontaneous
  Country: NL (occurrence: NL)
  Receive Date: 20210921
  Receipt Date: 20211124
  Transmission Date: 20220303
  Serious: Yes (Other)
  Sender: FDA-Public Use
  Company Number: NL-NOVARTISPH-NVSC2021NL214131

PATIENT
  Age: 55 Year
  Sex: Male

DRUGS (6)
  1. LEVETIRACETAM [Suspect]
     Active Substance: LEVETIRACETAM
     Indication: Aggression
     Dosage: 500 MG, BID
     Route: 065
  2. LEVETIRACETAM [Suspect]
     Active Substance: LEVETIRACETAM
     Indication: Epilepsy
  3. QUETIAPINE [Suspect]
     Active Substance: QUETIAPINE
     Indication: Aggression
     Dosage: 600 MG, QD
     Route: 065
  4. LORAZEPAM [Suspect]
     Active Substance: LORAZEPAM
     Indication: Insomnia
     Dosage: 1 MG, TID
     Route: 065
  5. LORAZEPAM [Suspect]
     Active Substance: LORAZEPAM
     Indication: Aggression
  6. DIAZEPAM [Suspect]
     Active Substance: DIAZEPAM
     Indication: Aggression
     Dosage: 2 MG, QD
     Route: 065

REACTIONS (15)
  - Hallucination [Unknown]
  - Suicidal behaviour [Unknown]
  - Seizure [Unknown]
  - Epilepsy [Not Recovered/Not Resolved]
  - Attention deficit hyperactivity disorder [Unknown]
  - Restlessness [Unknown]
  - Psychotic disorder [Unknown]
  - Agitation [Unknown]
  - Anger [Unknown]
  - Amnesia [Unknown]
  - Affect lability [Unknown]
  - Memory impairment [Unknown]
  - Confusional state [Unknown]
  - Drug ineffective [Unknown]
  - Aggression [Not Recovered/Not Resolved]
